FAERS Safety Report 19201934 (Version 1)
Quarter: 2021Q2

REPORT INFORMATION
  Report Type: Spontaneous
  Country: HR (occurrence: HR)
  Receive Date: 20210430
  Receipt Date: 20210430
  Transmission Date: 20210717
  Serious: Yes (Hospitalization)
  Sender: FDA-Public Use
  Company Number: HR-JNJFOC-20210455871

PATIENT
  Age: 76 Year

DRUGS (13)
  1. LERCANIDIPINE [Concomitant]
     Active Substance: LERCANIDIPINE
  2. BECLOMETASONE;FORMOTEROL [Concomitant]
     Active Substance: BECLOMETHASONE\FORMOTEROL
  3. ACETYLSALICYLIC ACID CARDIO [Concomitant]
     Active Substance: ASPIRIN
  4. ATORVASTATIN [Concomitant]
     Active Substance: ATORVASTATIN
  5. INSULIN [Concomitant]
     Active Substance: INSULIN NOS
     Dosage: 2 DOSES
  6. MARTEFARIN [Concomitant]
     Active Substance: WARFARIN
     Indication: ANTICOAGULANT THERAPY
     Dosage: TITRATED ACCORDING TO TRANSFUSIOLOGIST
  7. FUROSEMIDE. [Concomitant]
     Active Substance: FUROSEMIDE
  8. RIVAROXABAN [Suspect]
     Active Substance: RIVAROXABAN
     Indication: ANTICOAGULANT THERAPY
     Dosage: 15 MG, QD
     Route: 048
     Dates: start: 2021
  9. SPIRONOLACTONE. [Concomitant]
     Active Substance: SPIRONOLACTONE
  10. BISOPROLOL [Concomitant]
     Active Substance: BISOPROLOL
  11. RAMIPRIL. [Concomitant]
     Active Substance: RAMIPRIL
  12. TRIMETAZIDINE [Concomitant]
     Active Substance: TRIMETAZIDINE
  13. SEMAGLUTIDE [Concomitant]
     Active Substance: SEMAGLUTIDE

REACTIONS (1)
  - COVID-19 pneumonia [Recovered/Resolved]

NARRATIVE: CASE EVENT DATE: 202103
